FAERS Safety Report 8181046-7 (Version None)
Quarter: 2012Q1

REPORT INFORMATION
  Report Type: 
  Country: None (occurrence: None)
  Receive Date: 20120302
  Receipt Date: 20120224
  Transmission Date: 20120608
  Serious: Yes (Other)
  Sender: FDA-Public Use
  Company Number: BR-PFIZER INC-2012050734

PATIENT
  Age: 68 Year
  Sex: Female

DRUGS (1)
  1. XALATAN [Suspect]
     Indication: GLAUCOMA
     Dosage: 3 UG, 1X/DAY (ONE DROP EACH EYE, ONCE A DAY)
     Route: 047
     Dates: start: 20030101

REACTIONS (1)
  - CATARACT [None]
